FAERS Safety Report 8057263-3 (Version None)
Quarter: 2012Q1

REPORT INFORMATION
  Report Type: 
  Country: None (occurrence: None)
  Receive Date: 20120119
  Receipt Date: 20120116
  Transmission Date: 20120608
  Serious: Yes (Death, Other)
  Sender: FDA-Public Use
  Company Number: PHHY2011JP90873

PATIENT
  Sex: Male
  Weight: 59 kg

DRUGS (8)
  1. METHYCOBAL [Concomitant]
     Dosage: 500 UG
     Route: 048
  2. URIEF [Concomitant]
     Dosage: 4 MG
     Route: 048
  3. LANSOPRAZOLE [Concomitant]
     Dosage: 15 MG
     Route: 048
  4. SELTOUCH [Concomitant]
  5. AMLODIPINE MALEATE [Concomitant]
     Dosage: 5 MG
     Route: 048
  6. AFINITOR [Suspect]
     Indication: METASTATIC RENAL CELL CARCINOMA
     Dosage: 10 MG DAILY
     Route: 048
     Dates: start: 20110802
  7. ALLOPURINOL [Concomitant]
     Indication: PROPHYLAXIS
     Dosage: UNK UKN, UNK
     Route: 048
     Dates: start: 20110802
  8. AFINITOR [Suspect]
     Dosage: 10 MG DAILY
     Route: 048
     Dates: start: 20110912

REACTIONS (3)
  - NEOPLASM MALIGNANT [None]
  - NEOPLASM PROGRESSION [None]
  - NEUTROPHIL COUNT DECREASED [None]
